FAERS Safety Report 8217496-X (Version None)
Quarter: 2012Q1

REPORT INFORMATION
  Report Type: 
  Country: None (occurrence: None)
  Receive Date: 20120302
  Receipt Date: 20110919
  Transmission Date: 20120608
  Serious: Yes (Hospitalization)
  Sender: FDA-Public Use
  Company Number: 2011BH029601

PATIENT
  Age: 66 Year
  Sex: Female

DRUGS (1)
  1. EXTRANEAL [Suspect]
     Indication: PERITONEAL DIALYSIS
     Dosage: ;EVERY PM;IP
     Route: 033
     Dates: start: 20080508, end: 20110901

REACTIONS (1)
  - PERITONITIS BACTERIAL [None]
